FAERS Safety Report 7679945-5 (Version None)
Quarter: 2011Q3

REPORT INFORMATION
  Report Type: 
  Country: None (occurrence: None)
  Receive Date: 20110812
  Receipt Date: 20110809
  Transmission Date: 20111222
  Serious: Yes (Death)
  Sender: FDA-Public Use
  Company Number: US-GILEAD-2011-0042262

PATIENT
  Age: 89 Year
  Sex: Female

DRUGS (1)
  1. RANEXA [Suspect]
     Indication: ANGINA UNSTABLE
     Route: 048
     Dates: start: 20110701, end: 20110701

REACTIONS (1)
  - HEPATIC FAILURE [None]
